FAERS Safety Report 22094041 (Version 1)
Quarter: 2023Q1

REPORT INFORMATION
  Report Type: Report from Study
  Country: CA (occurrence: None)
  Receive Date: 20230314
  Receipt Date: 20230314
  Transmission Date: 20230417
  Serious: Yes (Other)
  Sender: FDA-Public Use
  Company Number: 2023A058192

PATIENT
  Sex: Female

DRUGS (7)
  1. FASENRA [Suspect]
     Active Substance: BENRALIZUMAB
     Indication: Asthma
     Route: 058
     Dates: start: 20221229
  2. PREDNISONE [Concomitant]
     Active Substance: PREDNISONE
     Dates: start: 20221015
  3. REACTINE [Concomitant]
     Dates: start: 202101
  4. VENTOLIN [Concomitant]
     Active Substance: ALBUTEROL SULFATE
     Dosage: 100MCG
     Dates: start: 201201
  5. SINGULAIR [Concomitant]
     Active Substance: MONTELUKAST SODIUM
     Dates: start: 202101
  6. ZENHALE [Concomitant]
     Active Substance: FORMOTEROL FUMARATE\MOMETASONE FUROATE
     Dosage: 200/5MCG 2 PUFFS BID
     Dates: start: 202101
  7. SPIRIVA RESPIMAT [Concomitant]
     Active Substance: TIOTROPIUM BROMIDE
     Dosage: 18MCG 1 PUFF DAILY
     Dates: start: 202204

REACTIONS (3)
  - Blood pressure increased [Unknown]
  - Rash [Unknown]
  - Injection site rash [Unknown]
